FAERS Safety Report 4709673-7 (Version None)
Quarter: 2005Q2

REPORT INFORMATION
  Report Type: 
  Country: None (occurrence: None)
  Receive Date: 20050629
  Receipt Date: 20050505
  Transmission Date: 20051028
  Serious: No
  Sender: FDA-Public Use
  Company Number: 05P-163-0299895-00

PATIENT
  Age: 37 Year
  Sex: Female

DRUGS (6)
  1. HUMIRA [Suspect]
     Indication: RHEUMATOID ARTHRITIS
     Dosage: 40 MG, 1 IN 2 WK, SUBCUTANEOUS
     Route: 058
     Dates: start: 20040101
  2. PREDNISONE TAB [Concomitant]
  3. SERTRALINE HYDROCHLORIDE [Concomitant]
  4. AMITRIPTYLINE HCL [Concomitant]
  5. TRAZODONE [Concomitant]
  6. BIRTH CONTROL PILLS [Concomitant]

REACTIONS (3)
  - ABDOMINAL PAIN UPPER [None]
  - DIARRHOEA [None]
  - RECTAL HAEMORRHAGE [None]
